FAERS Safety Report 9830276 (Version 2)
Quarter: 2014Q1

REPORT INFORMATION
  Report Type: Spontaneous
  Country: US (occurrence: US)
  Receive Date: 20140120
  Receipt Date: 20140305
  Transmission Date: 20141002
  Serious: Yes (Hospitalization)
  Sender: FDA-Public Use
  Company Number: US-BAXTER-2014BAX001775

PATIENT
  Age: 53 Year
  Sex: Female

DRUGS (4)
  1. DIANEAL PD2 [Suspect]
     Indication: PERITONEAL DIALYSIS
     Route: 033
     Dates: start: 201201
  2. DIANEAL PD2 [Suspect]
     Route: 033
     Dates: start: 201201
  3. DIANEAL PD2 [Suspect]
     Indication: PERITONEAL DIALYSIS
     Route: 033
     Dates: start: 201201
  4. DIANEAL PD2 [Suspect]
     Route: 033
     Dates: start: 201201

REACTIONS (2)
  - Peripheral arterial occlusive disease [Recovering/Resolving]
  - Peritonitis bacterial [Not Recovered/Not Resolved]
